FAERS Safety Report 15961683 (Version 1)
Quarter: 2019Q1

REPORT INFORMATION
  Report Type: Spontaneous
  Country: US (occurrence: US)
  Receive Date: 20190214
  Receipt Date: 20190214
  Transmission Date: 20190417
  Serious: Yes (Disabling)
  Sender: FDA-Public Use
  Company Number: None

PATIENT
  Age: 37 Year
  Sex: Female
  Weight: 51.75 kg

DRUGS (2)
  1. CIPROFLOXACIN - INTRAVENOUS, GIVEN AT MERCY MEDICAL CENTER, BALTIMORE [Suspect]
     Active Substance: CIPROFLOXACIN
     Indication: DEVICE RELATED INFECTION
     Route: 042
     Dates: start: 20170818, end: 20170821
  2. CIPROFLOXACIN - INTRAVENOUS, GIVEN AT MERCY MEDICAL CENTER, BALTIMORE [Suspect]
     Active Substance: CIPROFLOXACIN
     Indication: POST PROCEDURAL INFECTION
     Route: 042
     Dates: start: 20170818, end: 20170821

REACTIONS (6)
  - Red man syndrome [None]
  - Tinnitus [None]
  - Device related infection [None]
  - Skin exfoliation [None]
  - Neuropathy peripheral [None]
  - Deafness unilateral [None]

NARRATIVE: CASE EVENT DATE: 20170822
